FAERS Safety Report 21896608 (Version 1)
Quarter: 2023Q1

REPORT INFORMATION
  Report Type: Spontaneous
  Country: BR (occurrence: BR)
  Receive Date: 20230123
  Receipt Date: 20230123
  Transmission Date: 20230417
  Serious: Yes (Other)
  Sender: FDA-Public Use
  Company Number: BR-ORGANON-O2301BRA001190

PATIENT
  Sex: Female
  Weight: 61 kg

DRUGS (10)
  1. FOSAMAX PLUS D [Suspect]
     Active Substance: ALENDRONATE SODIUM\CHOLECALCIFEROL
     Indication: Osteopenia
     Dosage: SHE USED IT ON MONDAYS
     Route: 048
     Dates: start: 2020, end: 20221229
  2. FOSAMAX PLUS D [Suspect]
     Active Substance: ALENDRONATE SODIUM\CHOLECALCIFEROL
     Indication: Osteoporosis
  3. MINERALS\VITAMINS [Suspect]
     Active Substance: MINERALS\VITAMINS
     Dosage: 1000 IU ONCE A WEEK
  4. MINERALS\VITAMINS [Suspect]
     Active Substance: MINERALS\VITAMINS
     Dosage: ONE CAPSULE A DAY
     Route: 048
  5. CALCIUM CARBONATE\CHOLECALCIFEROL [Suspect]
     Active Substance: CALCIUM CARBONATE\CHOLECALCIFEROL
     Dosage: UNK
  6. PURAN [Concomitant]
     Active Substance: LEVOTHYROXINE SODIUM
     Indication: Thyroidectomy
     Dosage: 1 TABLET IN THE MORNING MONDAY THROUGH SATURDAY
     Route: 048
  7. PURAN [Concomitant]
     Active Substance: LEVOTHYROXINE SODIUM
     Indication: Thyroidectomy
     Dosage: 1 TABLET IN THE MORNING ON SUNDAYS
     Route: 048
  8. BISOPROLOL FUMARATE [Concomitant]
     Active Substance: BISOPROLOL FUMARATE
     Indication: Arrhythmia
     Dosage: 1 TABLET AT NIGHT BEFORE GOING TO BED
     Route: 048
  9. ROSUVASTATIN CALCIUM [Concomitant]
     Active Substance: ROSUVASTATIN CALCIUM
     Indication: Blood cholesterol abnormal
     Dosage: 1 TABLET AT NIGHT AFTER THE LAST MEAL
     Route: 048
  10. PROBIATOP [Concomitant]
     Indication: Gastric disorder
     Dosage: USES AT NIGHT

REACTIONS (4)
  - Intracranial aneurysm [Unknown]
  - Gallbladder polyp [Unknown]
  - Herpes zoster [Recovered/Resolved]
  - Product use in unapproved indication [Unknown]

NARRATIVE: CASE EVENT DATE: 20200101
